FAERS Safety Report 19983679 (Version 2)
Quarter: 2021Q4

REPORT INFORMATION
  Report Type: Spontaneous
  Country: FI (occurrence: FI)
  Receive Date: 20211022
  Receipt Date: 20211029
  Transmission Date: 20220303
  Serious: Yes (Death, Hospitalization, Other)
  Sender: FDA-Public Use
  Company Number: FI-009507513-2108FIN001738

PATIENT
  Age: 36 Year
  Sex: Female

DRUGS (3)
  1. KEYTRUDA [Suspect]
     Active Substance: PEMBROLIZUMAB
     Indication: Cervix cancer metastatic
     Dosage: DOSE 200 (UNITS NOT PROVIDED); EVERY THREE WEEKS
     Dates: start: 20210504, end: 20210504
  2. KEYTRUDA [Suspect]
     Active Substance: PEMBROLIZUMAB
     Dosage: DOSE 200 (UNITS NOT PROVIDED), EVERY THREE WEEKS
     Dates: start: 20210701, end: 20210722
  3. XGEVA [Concomitant]
     Active Substance: DENOSUMAB
     Indication: Bone disorder

REACTIONS (20)
  - Death [Fatal]
  - Intracardiac thrombus [Unknown]
  - Pulmonary embolism [Unknown]
  - Arrhythmia [Unknown]
  - Immobile [Unknown]
  - Pneumonia [Recovered/Resolved]
  - Malignant neoplasm progression [Unknown]
  - Cardiovascular disorder [Unknown]
  - Gastrointestinal disorder [Unknown]
  - Urinary tract infection [Unknown]
  - Platelet count decreased [Unknown]
  - Pain [Unknown]
  - Insomnia [Unknown]
  - Vomiting [Unknown]
  - Fatigue [Unknown]
  - Nausea [Unknown]
  - Decreased appetite [Unknown]
  - Diarrhoea [Unknown]
  - Drug ineffective for unapproved indication [Unknown]
  - Off label use [Unknown]

NARRATIVE: CASE EVENT DATE: 20210101
